FAERS Safety Report 8815167 (Version 3)
Quarter: 2013Q1

REPORT INFORMATION
  Report Type: Spontaneous
  Country: AU (occurrence: AU)
  Receive Date: 20120928
  Receipt Date: 20130214
  Transmission Date: 20140127
  Serious: Yes (Other)
  Sender: FDA-Public Use
  Company Number: AU-JNJFOC-20120910418

PATIENT
  Sex: Female

DRUGS (4)
  1. INVEGA SUSTENNA [Suspect]
     Indication: DELUSION
     Route: 030
     Dates: start: 20120911
  2. INVEGA SUSTENNA [Suspect]
     Indication: DELUSION
     Dosage: ONE DOSE IMMEDIATELY
     Route: 030
     Dates: start: 20120904
  3. INVEGA SUSTENNA [Suspect]
     Indication: HALLUCINATION, AUDITORY
     Dosage: ONE DOSE IMMEDIATELY
     Route: 030
     Dates: start: 20120904
  4. INVEGA SUSTENNA [Suspect]
     Indication: HALLUCINATION, AUDITORY
     Route: 030
     Dates: start: 20120911

REACTIONS (6)
  - Cellulitis [Recovering/Resolving]
  - Injection site erythema [Recovering/Resolving]
  - Mobility decreased [Recovering/Resolving]
  - Syringe issue [Unknown]
  - Injection site pain [Recovering/Resolving]
  - Underdose [Unknown]
